FAERS Safety Report 8184656-6 (Version None)
Quarter: 2012Q1

REPORT INFORMATION
  Report Type: 
  Country: None (occurrence: None)
  Receive Date: 20120301
  Receipt Date: 20120217
  Transmission Date: 20120608
  Serious: Yes (Other)
  Sender: FDA-Public Use
  Company Number: JPI-P-019944

PATIENT
  Age: 45 Year
  Sex: Male
  Weight: 99.7913 kg

DRUGS (8)
  1. METHOTREXATE [Concomitant]
  2. SERTRALINE HYDROCHLORIDE [Concomitant]
  3. OMEPRAZOLE [Concomitant]
  4. FOLIC ACID [Concomitant]
  5. XYREM [Suspect]
     Indication: CATAPLEXY
     Dosage: ORAL,  9 GM (4.5 GM,2 IN 1 D),ORAL
     Route: 048
     Dates: start: 20090501
  6. INFLIXIMAB [Concomitant]
  7. CELECOXIB [Concomitant]
  8. LEUCOVORIN CALCIUM [Concomitant]

REACTIONS (2)
  - HIP ARTHROPLASTY [None]
  - PROCEDURAL PAIN [None]
